FAERS Safety Report 4462304-6 (Version None)
Quarter: 2004Q3

REPORT INFORMATION
  Report Type: 
  Country: None (occurrence: None)
  Receive Date: 20040929
  Receipt Date: 20011204
  Transmission Date: 20050211
  Serious: Yes (Hospitalization)
  Sender: FDA-Public Use
  Company Number: PHEH2001US09939

PATIENT
  Age: 21 Year
  Sex: Female
  Weight: 71 kg

DRUGS (4)
  1. TEGASEROD VS PLACEBO [Suspect]
     Indication: CONSTIPATION
     Dosage: 2 MG, BID
     Route: 048
     Dates: start: 20011102, end: 20011120
  2. TEGASEROD VS PLACEBO [Suspect]
     Dosage: UNK, NO TREATMENT
     Dates: start: 20011121, end: 20011123
  3. TEGASEROD VS PLACEBO [Suspect]
     Route: 048
     Dates: start: 20011124
  4. DEPO-PROVERA [Concomitant]

REACTIONS (5)
  - CONCOMITANT DISEASE PROGRESSION [None]
  - ENDOMETRIOSIS [None]
  - HYSTERECTOMY [None]
  - PELVIC PAIN [None]
  - UTERINE HAEMORRHAGE [None]
